FAERS Safety Report 5104298-6 (Version None)
Quarter: 2006Q3

REPORT INFORMATION
  Report Type: 
  Country: None (occurrence: None)
  Receive Date: 20060912
  Receipt Date: 20060912
  Transmission Date: 20061208
  Serious: Yes (Hospitalization)
  Sender: FDA-Public Use
  Company Number: None

PATIENT
  Sex: Male

DRUGS (12)
  1. HEPARIN [Suspect]
     Indication: ATRIAL FIBRILLATION
     Dosage: PROTOCOL    IV
     Route: 042
     Dates: start: 20060130, end: 20060202
  2. WARFARIN     2.5 MG [Suspect]
     Indication: ATRIAL FIBRILLATION
     Dosage: 2.5 MG  DAILY  PO
     Route: 048
     Dates: start: 20060131, end: 20060202
  3. KETOROLAC TROMETHAMINE [Concomitant]
  4. TRAMADOL HCL [Concomitant]
  5. CLONAZEPAM [Concomitant]
  6. GATIFLOXACIN [Concomitant]
  7. SOTALOL HYDROCHLORIDE [Concomitant]
  8. GEMFIBROZIL [Concomitant]
  9. SIMVASTATIN [Concomitant]
  10. PROPOXYPHENE HCL AND ACETAMINOPHEN [Concomitant]
  11. PAROXETINE HCL [Concomitant]
  12. ZOLPIDEM TARTRATE [Concomitant]

REACTIONS (3)
  - HAEMATOCRIT DECREASED [None]
  - HAEMATURIA [None]
  - HAEMOGLOBIN DECREASED [None]
